APPROVED DRUG PRODUCT: LOTEPREDNOL ETABONATE AND TOBRAMYCIN
Active Ingredient: LOTEPREDNOL ETABONATE; TOBRAMYCIN
Strength: 0.5%;0.3%
Dosage Form/Route: SUSPENSION/DROPS;OPHTHALMIC
Application: A217597 | Product #001 | TE Code: AB
Applicant: ALEMBIC PHARMACEUTICALS LTD
Approved: Dec 10, 2025 | RLD: No | RS: No | Type: RX

EXCLUSIVITY:
Code: CGT | Date: Jul 14, 2026